FAERS Safety Report 21318970 (Version 2)
Quarter: 2022Q4

REPORT INFORMATION
  Report Type: Spontaneous
  Country: US (occurrence: US)
  Receive Date: 20220911
  Receipt Date: 20221206
  Transmission Date: 20230112
  Serious: No
  Sender: FDA-Public Use
  Company Number: US-SA-SAC20220831000314

PATIENT
  Sex: Female

DRUGS (1)
  1. AUBAGIO [Suspect]
     Active Substance: TERIFLUNOMIDE
     Indication: Multiple sclerosis
     Dosage: 14 MG, QD
     Route: 048
     Dates: start: 20190823

REACTIONS (11)
  - Constipation [Unknown]
  - Depression [Unknown]
  - Musculoskeletal stiffness [Unknown]
  - Functional gastrointestinal disorder [Unknown]
  - Sexual dysfunction [Unknown]
  - Back pain [Unknown]
  - Balance disorder [Unknown]
  - Dizziness [Unknown]
  - Muscle spasticity [Unknown]
  - Fatigue [Unknown]
  - Headache [Unknown]
